FAERS Safety Report 9723279 (Version 4)
Quarter: 2014Q1

REPORT INFORMATION
  Report Type: Spontaneous
  Country: US (occurrence: US)
  Receive Date: 20131202
  Receipt Date: 20140310
  Transmission Date: 20141002
  Serious: Yes (Life-Threatening, Hospitalization, Disabling, Other)
  Sender: FDA-Public Use
  Company Number: PHEH2013US024814

PATIENT
  Age: 42 Year
  Sex: Female
  Weight: 68.9 kg

DRUGS (13)
  1. GILENYA [Suspect]
     Indication: MULTIPLE SCLEROSIS
     Dosage: 0.5 MG, QD
     Route: 048
     Dates: start: 20121011, end: 20131127
  2. VORICONAZOLE [Suspect]
  3. NEURONTIN [Concomitant]
     Dosage: 300 MG, QID
     Route: 048
  4. ULTRAM//TRAMADOL HYDROCHLORIDE [Concomitant]
     Indication: NEURALGIA
     Dosage: 50 MG, Q6H
     Route: 048
  5. AMBIEN [Concomitant]
     Indication: INSOMNIA
     Dosage: 5 MG, QHS
     Route: 048
  6. VANCOMYCIN [Concomitant]
  7. CEFEPIME [Concomitant]
  8. MICAFUNGIN [Concomitant]
  9. ACYCLOVIR [Concomitant]
  10. GENTAMYCEN [Concomitant]
  11. MEROPENEM [Concomitant]
  12. FLUCONAZOLE [Concomitant]
  13. VITAMIN B12 [Concomitant]

REACTIONS (22)
  - Acute myeloid leukaemia [Recovered/Resolved]
  - Weight decreased [Unknown]
  - Malaise [Unknown]
  - Headache [Unknown]
  - Nausea [Unknown]
  - Vomiting [Unknown]
  - Pyrexia [Unknown]
  - Transaminases increased [Unknown]
  - Aspartate aminotransferase increased [Unknown]
  - Alanine aminotransferase increased [Unknown]
  - Blood alkaline phosphatase increased [Unknown]
  - Serum ferritin increased [Unknown]
  - Lymphadenopathy [Recovering/Resolving]
  - Lymphocytosis [Unknown]
  - Pulmonary hypertension [Unknown]
  - Cerebral atrophy [Unknown]
  - Cognitive disorder [Unknown]
  - Febrile neutropenia [Unknown]
  - Mucosal inflammation [Unknown]
  - Candida infection [Unknown]
  - Pneumonia [Unknown]
  - Pulmonary mass [Unknown]
